FAERS Safety Report 14120723 (Version 1)
Quarter: 2017Q4

REPORT INFORMATION
  Report Type: Report from Study
  Country: FR (occurrence: FR)
  Receive Date: 20171024
  Receipt Date: 20171024
  Transmission Date: 20180321
  Serious: Yes (Hospitalization)
  Sender: FDA-Public Use
  Company Number: FR-ASTRAZENECA-2017SF04159

PATIENT
  Age: 5627 Day
  Sex: Male

DRUGS (2)
  1. OLAPARIB. [Suspect]
     Active Substance: OLAPARIB
     Indication: MALIGNANT GLIOMA
     Route: 048
     Dates: start: 20170922, end: 20171001
  2. IRINOTECAN [Suspect]
     Active Substance: IRINOTECAN
     Indication: MALIGNANT GLIOMA
     Route: 042
     Dates: start: 20170925, end: 20170929

REACTIONS (1)
  - Febrile bone marrow aplasia [Recovered/Resolved]

NARRATIVE: CASE EVENT DATE: 20171005
